FAERS Safety Report 14698215 (Version 2)
Quarter: 2018Q2

REPORT INFORMATION
  Report Type: Report from Study
  Country: None (occurrence: GB)
  Receive Date: 20180330
  Receipt Date: 20180406
  Transmission Date: 20180711
  Serious: Yes (Death, Hospitalization)
  Sender: FDA-Public Use
  Company Number: GB-ABBVIE-18K-167-2306527-00

PATIENT
  Sex: Female

DRUGS (1)
  1. HUMIRA [Suspect]
     Active Substance: ADALIMUMAB
     Indication: RHEUMATOID ARTHRITIS
     Route: 058
     Dates: end: 2017

REACTIONS (5)
  - Multiple organ dysfunction syndrome [Unknown]
  - Rheumatoid arthritis [Fatal]
  - Infection [Unknown]
  - Pneumonia [Fatal]
  - Immunosuppression [Unknown]

NARRATIVE: CASE EVENT DATE: 2016
